FAERS Safety Report 24199716 (Version 3)
Quarter: 2025Q4

REPORT INFORMATION
  Report Type: Report from Study
  Country: US (occurrence: US)
  Receive Date: 20240812
  Receipt Date: 20251230
  Transmission Date: 20260119
  Serious: Yes (Death, Other)
  Sender: JOHNSON AND JOHNSON
  Company Number: US-JNJFOC-20240805736

PATIENT
  Age: 59 Year
  Sex: Male

DRUGS (1)
  1. CILTACABTAGENE AUTOLEUCEL [Suspect]
     Active Substance: CILTACABTAGENE AUTOLEUCEL
     Indication: Plasma cell myeloma

REACTIONS (5)
  - Respiratory failure [Fatal]
  - Viral infection [Fatal]
  - Neoplasm malignant [Fatal]
  - Basal cell carcinoma [Unknown]
  - Squamous cell carcinoma of skin [Unknown]
